APPROVED DRUG PRODUCT: OLANZAPINE
Active Ingredient: OLANZAPINE
Strength: 15MG
Dosage Form/Route: TABLET, ORALLY DISINTEGRATING;ORAL
Application: A203708 | Product #003 | TE Code: AB
Applicant: AUROBINDO PHARMA LTD
Approved: May 15, 2014 | RLD: No | RS: No | Type: RX